FAERS Safety Report 7412522-X (Version None)
Quarter: 2011Q2

REPORT INFORMATION
  Report Type: 
  Country: None (occurrence: None)
  Receive Date: 20110413
  Receipt Date: 20110407
  Transmission Date: 20111010
  Serious: Yes (Death, Life-Threatening, Other)
  Sender: FDA-Public Use
  Company Number: JP-CEPHALON-2011000279

PATIENT
  Sex: Male

DRUGS (11)
  1. INSULIN ASPART [Concomitant]
     Dates: end: 20101231
  2. RABEPRAZOLE SODIUM [Concomitant]
     Dates: end: 20110104
  3. REBAMIPIDE [Concomitant]
     Dates: end: 20110104
  4. MEDIUM [Concomitant]
     Dates: start: 20101227, end: 20101230
  5. AMINO ACIDS NOS W/CARBOHYD NOS/ELECTROL NOS [Concomitant]
     Dates: start: 20101230, end: 20110108
  6. DEXAMETHASONE SODIUM PHOSPHATE [Concomitant]
     Dates: start: 20101227, end: 20110108
  7. SULFAMETHOXAZOLE [Concomitant]
     Dates: end: 20110104
  8. BROTIZOLAM [Concomitant]
     Dates: end: 20110104
  9. BENDAMUSTINE HCL [Suspect]
     Indication: NON-HODGKIN'S LYMPHOMA
     Route: 042
     Dates: start: 20101228, end: 20101229
  10. FLUCONAZOLE [Concomitant]
     Dates: end: 20110104
  11. PALONOSETRON HYDROCHLORIDE [Concomitant]
     Dates: start: 20101228, end: 20101228

REACTIONS (5)
  - RENAL IMPAIRMENT [None]
  - DIABETES MELLITUS [None]
  - PLATELET COUNT DECREASED [None]
  - LYMPHOCYTE COUNT DECREASED [None]
  - NON-HODGKIN'S LYMPHOMA [None]
